FAERS Safety Report 5846968-8 (Version None)
Quarter: 2008Q3

REPORT INFORMATION
  Report Type: 
  Country: None (occurrence: None)
  Receive Date: 20080815
  Receipt Date: 20080807
  Transmission Date: 20090109
  Serious: Yes (Hospitalization)
  Sender: FDA-Public Use
  Company Number: NL-ABBOTT-08P-114-0469389-00

PATIENT
  Age: 7 Year
  Sex: Female

DRUGS (4)
  1. VALPROIC ACID [Suspect]
     Indication: MYOCLONIC EPILEPSY
     Route: 065
  2. PARACETAMOL [Suspect]
     Indication: PYREXIA
  3. CLOBAZAM [Concomitant]
     Indication: MYOCLONIC EPILEPSY
     Route: 065
  4. STIRIPENTOL [Concomitant]
     Indication: MYOCLONIC EPILEPSY
     Route: 065

REACTIONS (3)
  - ACUTE HEPATIC FAILURE [None]
  - BLOOD CREATINE PHOSPHOKINASE INCREASED [None]
  - CARNITINE DEFICIENCY [None]
